FAERS Safety Report 12057600 (Version 1)
Quarter: 2016Q1

REPORT INFORMATION
  Report Type: Report from Study
  Country: US (occurrence: US)
  Receive Date: 20160209
  Receipt Date: 20160209
  Transmission Date: 20160526
  Serious: Yes (Hospitalization)
  Sender: FDA-Public Use
  Company Number: US-ACTELION-A-US2016-130474

PATIENT
  Age: 59 Year
  Sex: Female

DRUGS (3)
  1. WARFARIN [Concomitant]
     Active Substance: WARFARIN
  2. MACITENTAN [Suspect]
     Active Substance: MACITENTAN
     Indication: PULMONARY ARTERIAL HYPERTENSION
     Dosage: UNK
     Route: 048
     Dates: start: 20150716
  3. TREPROSTINIL [Concomitant]
     Active Substance: TREPROSTINIL

REACTIONS (3)
  - Blood pressure decreased [Unknown]
  - Malaise [Unknown]
  - Respiratory syncytial virus infection [Unknown]
